FAERS Safety Report 8027984-7 (Version None)
Quarter: 2011Q4

REPORT INFORMATION
  Report Type: 
  Country: None (occurrence: None)
  Receive Date: 20111130
  Receipt Date: 20110705
  Transmission Date: 20120403
  Serious: Yes (Other)
  Sender: FDA-Public Use
  Company Number: US200906005630

PATIENT
  Sex: Female
  Weight: 131.5 kg

DRUGS (8)
  1. TOPIRAMATE [Concomitant]
  2. CLONAZEPAM [Concomitant]
  3. CYMBALTA [Concomitant]
  4. ARIXTRA [Concomitant]
  5. BYETTA [Suspect]
     Dates: start: 20071016, end: 20090905
  6. TRAZODONE HCL [Concomitant]
  7. LEXAPRO [Concomitant]
  8. EXENATIDE UNK STRENGTH PEN, DISPOSABLE DEVICE (EXENATIDE PEN (UNKNOWN [Concomitant]

REACTIONS (5)
  - RENAL FAILURE ACUTE [None]
  - CHOLELITHIASIS [None]
  - NEPHROLITHIASIS [None]
  - PANCREATITIS ACUTE [None]
  - DIABETIC NEUROPATHY [None]
